FAERS Safety Report 6122667-2 (Version None)
Quarter: 2009Q1

REPORT INFORMATION
  Report Type: 
  Country: None (occurrence: None)
  Receive Date: 20090318
  Receipt Date: 20090309
  Transmission Date: 20090719
  Serious: Yes (Hospitalization)
  Sender: FDA-Public Use
  Company Number: FR-ASTRAZENECA-2009CG00486

PATIENT
  Age: 30210 Day
  Sex: Male

DRUGS (12)
  1. PULMICORT-100 [Suspect]
     Indication: DYSPNOEA
     Route: 055
     Dates: end: 20081010
  2. CORTANCYL [Suspect]
     Route: 048
     Dates: end: 20081011
  3. SOLU-MEDROL [Suspect]
     Indication: DYSPNOEA
     Route: 048
     Dates: start: 20081006, end: 20081008
  4. BRICANYL [Concomitant]
     Route: 065
  5. MOPRAL [Concomitant]
     Route: 065
  6. INNOHEP [Concomitant]
     Indication: PHLEBITIS
     Route: 058
     Dates: start: 20081006, end: 20081011
  7. FOSAVANCE [Concomitant]
     Route: 048
     Dates: start: 20081007
  8. PLAVIX [Concomitant]
     Indication: EMBOLISM
     Route: 048
  9. COAPROVEL [Concomitant]
  10. SECTRAL [Concomitant]
  11. PROSCAR [Concomitant]
  12. NIDREL [Concomitant]

REACTIONS (1)
  - SPINAL COMPRESSION FRACTURE [None]
